FAERS Safety Report 8326711-3 (Version None)
Quarter: 2012Q2

REPORT INFORMATION
  Report Type: 
  Country: None (occurrence: None)
  Receive Date: 20120501
  Receipt Date: 20120423
  Transmission Date: 20120825
  Serious: Yes (Other)
  Sender: FDA-Public Use
  Company Number: CHPA2012US001169

PATIENT
  Age: 49 Year
  Sex: Male

DRUGS (15)
  1. PANTOPRAZOLE [Concomitant]
     Dosage: UNK DF, UNK
     Route: 048
     Dates: start: 20111201
  2. POTASSIUM CHLORIDE [Concomitant]
     Dosage: UNK DF, UNK
     Route: 048
     Dates: start: 20111201
  3. MORPHINE [Concomitant]
     Dosage: UNK DF, UNK
  4. FUROSEMIDE [Concomitant]
     Dosage: UNK DF, UNK
     Route: 048
     Dates: start: 20111201
  5. CLONIDINE HYDROCHLORIDE [Concomitant]
     Dosage: UNK DF, UNK
     Route: 048
     Dates: start: 20111201
  6. HYDROCODONE BITARTRATE [Concomitant]
     Indication: PAIN
     Dosage: UNK DF, UNK
  7. CLONAZEPAM [Concomitant]
     Indication: ANXIETY
     Dosage: UNK DF, UNK
     Route: 048
     Dates: start: 20111201
  8. NICOTINE [Suspect]
     Indication: SMOKING CESSATION THERAPY
     Dosage: 21 MG, QD
     Route: 062
     Dates: start: 20111203
  9. ALBUTEROL SULFATE [Concomitant]
     Indication: LUNG DISORDER
     Dosage: UNK DF, UNK
     Dates: start: 20111201
  10. ADVAIR DISKUS 100/50 [Concomitant]
     Indication: LUNG DISORDER
     Dosage: UNK DF, UNK
     Dates: start: 20111201
  11. DILANTIN [Concomitant]
     Dosage: UNK DF, UNK
  12. LISINOPRIL [Concomitant]
     Dosage: UNK DF, UNK
     Route: 048
     Dates: start: 20111201
  13. DILOXOL [Concomitant]
     Indication: ANTIBIOTIC THERAPY
     Dosage: UNK DF, UNK
     Route: 048
     Dates: start: 20111201
  14. DILTIAZEM [Concomitant]
     Dosage: UNK DF, UNK
     Route: 048
  15. SPIRIVA [Concomitant]
     Indication: LUNG DISORDER
     Dosage: UNK DF, QD
     Dates: start: 20111201

REACTIONS (6)
  - FEELING ABNORMAL [None]
  - TREATMENT NONCOMPLIANCE [None]
  - SPEECH DISORDER [None]
  - THERMAL BURN [None]
  - ULCER HAEMORRHAGE [None]
  - OVERDOSE [None]
